FAERS Safety Report 18969342 (Version 1)
Quarter: 2021Q1

REPORT INFORMATION
  Report Type: Spontaneous
  Country: CA (occurrence: CA)
  Receive Date: 20210304
  Receipt Date: 20210304
  Transmission Date: 20210420
  Serious: Yes (Other)
  Sender: FDA-Public Use
  Company Number: CA-UCBSA-2021009681

PATIENT

DRUGS (4)
  1. VIMPAT [Suspect]
     Active Substance: LACOSAMIDE
     Indication: PRODUCT USED FOR UNKNOWN INDICATION
     Dosage: UNK
  2. TYLENOL [Suspect]
     Active Substance: ACETAMINOPHEN
     Indication: PRODUCT USED FOR UNKNOWN INDICATION
     Dosage: UNK
  3. TYLENOL [Suspect]
     Active Substance: ACETAMINOPHEN
     Dosage: ATTEMPTED SUICIDE WITH 60 TABLETS OF LACOSAMIDE AND PARACETAMOL
  4. VIMPAT [Suspect]
     Active Substance: LACOSAMIDE
     Dosage: ATTEMPTED SUICIDE WITH 60 TABLETS OF LACOSAMIDE AND PARACETAMOL

REACTIONS (2)
  - Suicide attempt [Unknown]
  - Hepatic failure [Unknown]
